FAERS Safety Report 5164796-6 (Version None)
Quarter: 2006Q4

REPORT INFORMATION
  Report Type: 
  Country: None (occurrence: None)
  Receive Date: 20061205
  Receipt Date: 20061127
  Transmission Date: 20070319
  Serious: Yes (Hospitalization)
  Sender: FDA-Public Use
  Company Number: FR-AVENTIS-200614191FR

PATIENT
  Age: 84 Year
  Sex: Female

DRUGS (6)
  1. LASILIX                            /00032601/ [Suspect]
     Indication: CARDIAC FAILURE
     Route: 048
     Dates: start: 20060523
  2. ASPEGIC 1000 [Suspect]
     Route: 048
     Dates: start: 20060523, end: 20060707
  3. LEVOTHYROXINE SODIUM [Suspect]
     Indication: HYPOTHYROIDISM
     Route: 048
  4. ARICEPT [Suspect]
     Indication: LEUKOARAIOSIS
     Route: 048
  5. TAHOR [Suspect]
     Indication: HYPERCHOLESTEROLAEMIA
     Route: 048
  6. LERCAN [Suspect]
     Indication: ESSENTIAL HYPERTENSION
     Route: 048

REACTIONS (3)
  - ANAEMIA [None]
  - GASTRIC ULCER HAEMORRHAGE [None]
  - PEPTIC ULCER HAEMORRHAGE [None]
